FAERS Safety Report 8809966 (Version 1)
Quarter: 2012Q4

REPORT INFORMATION
  Report Type: 
  Country: US (occurrence: US)
  Receive Date: 20120926
  Receipt Date: 20120926
  Transmission Date: 20130627
  Serious: No
  Sender: FDA-Public Use
  Company Number: US-009507513-1208USA007959

PATIENT
  Sex: Male

DRUGS (8)
  1. EMEND [Suspect]
     Indication: PROPHYLAXIS OF NAUSEA AND VOMITING
     Dosage: 125 mg, Once
     Route: 048
  2. EMEND [Suspect]
     Dosage: 80 mg, qd
     Route: 048
  3. FLUOROURACIL [Concomitant]
  4. LEUCOVORIN [Concomitant]
  5. ALOXI [Concomitant]
  6. ZOFRAN [Concomitant]
  7. COMPAZINE [Concomitant]
  8. DEXAMETHASONE [Concomitant]

REACTIONS (2)
  - Vomiting [Recovered/Resolved]
  - Nausea [Recovered/Resolved]
